FAERS Safety Report 16581629 (Version 2)
Quarter: 2019Q3

REPORT INFORMATION
  Report Type: Spontaneous
  Country: US (occurrence: US)
  Receive Date: 20190716
  Receipt Date: 20190812
  Transmission Date: 20191004
  Serious: Yes (Hospitalization, Other)
  Sender: FDA-Public Use
  Company Number: US-BIOCODEX SA-201900710

PATIENT
  Age: 18 Year
  Sex: Male

DRUGS (1)
  1. DIACOMIT [Suspect]
     Active Substance: STIRIPENTOL
     Indication: PRODUCT USED FOR UNKNOWN INDICATION
     Dosage: GIVE 1 CAPSULE VIA G-TUBE TWICE A DAY
     Route: 065
     Dates: start: 20190521

REACTIONS (3)
  - Fall [Unknown]
  - Pneumonia [Unknown]
  - Seizure [Unknown]

NARRATIVE: CASE EVENT DATE: 20190624
